FAERS Safety Report 20870626 (Version 3)
Quarter: 2022Q4

REPORT INFORMATION
  Report Type: Spontaneous
  Country: JP (occurrence: JP)
  Receive Date: 20220525
  Receipt Date: 20221022
  Transmission Date: 20230113
  Serious: Yes (Life-Threatening, Hospitalization, Other)
  Sender: FDA-Public Use
  Company Number: JP-TAKEDA-2022TJP048829

PATIENT
  Age: 70 Year
  Sex: Male

DRUGS (5)
  1. LEUPLIN [Suspect]
     Active Substance: LEUPROLIDE ACETATE
     Indication: Prostate cancer
     Dosage: START PERIOD 16 DAYS
     Route: 058
     Dates: start: 20210420
  2. ASPIRIN [Concomitant]
     Active Substance: ASPIRIN
     Indication: Angina pectoris
     Dosage: 100 MILLIGRAM, QD
     Route: 065
  3. HERBESSER [Concomitant]
     Active Substance: DILTIAZEM HYDROCHLORIDE
     Indication: Angina pectoris
     Dosage: 100 MILLIGRAM, QD
     Route: 065
  4. CASODEX [Concomitant]
     Active Substance: BICALUTAMIDE
     Indication: Prostate cancer
     Dosage: START PERIOD 2305 DAYS
     Route: 065
     Dates: start: 20150113
  5. URSO [Concomitant]
     Active Substance: URSODIOL
     Indication: Prostate cancer
     Dosage: 100 MILLIGRAM, BID
     Route: 065
     Dates: start: 20150113

REACTIONS (3)
  - Diabetic ketoacidosis [Recovering/Resolving]
  - Altered state of consciousness [Unknown]
  - Type 2 diabetes mellitus [Unknown]

NARRATIVE: CASE EVENT DATE: 20210506
